FAERS Safety Report 17436791 (Version 1)
Quarter: 2020Q1

REPORT INFORMATION
  Report Type: Spontaneous
  Country: US (occurrence: US)
  Receive Date: 20200219
  Receipt Date: 20200219
  Transmission Date: 20200409
  Serious: No
  Sender: FDA-Public Use
  Company Number: US-SA-2020SA041989

PATIENT
  Sex: Male

DRUGS (2)
  1. NOVOLOG [Concomitant]
     Active Substance: INSULIN ASPART
     Dosage: 20 UNITS BEFORE EACH MEAL
     Route: 065
  2. LANTUS SOLOSTAR [Suspect]
     Active Substance: INSULIN GLARGINE
     Dosage: 52 IU, HS
     Route: 065

REACTIONS (3)
  - Product storage error [Unknown]
  - Glycosylated haemoglobin decreased [Unknown]
  - Blood glucose increased [Unknown]
